FAERS Safety Report 24160511 (Version 1)
Quarter: 2024Q3

REPORT INFORMATION
  Report Type: Spontaneous
  Country: FR (occurrence: FR)
  Receive Date: 20240801
  Receipt Date: 20240801
  Transmission Date: 20241017
  Serious: Yes (Other)
  Sender: ROCHE
  Company Number: None

PATIENT
  Age: 76 Year
  Sex: Male

DRUGS (1)
  1. TOCILIZUMAB [Suspect]
     Active Substance: TOCILIZUMAB
     Indication: Giant cell arteritis
     Route: 058
     Dates: start: 20240605, end: 20240612

REACTIONS (2)
  - Dermatitis psoriasiform [Recovering/Resolving]
  - Polymyalgia rheumatica [Recovering/Resolving]

NARRATIVE: CASE EVENT DATE: 20240612
